FAERS Safety Report 15693919 (Version 1)
Quarter: 2018Q4

REPORT INFORMATION
  Report Type: Report from Study
  Country: CA (occurrence: CA)
  Receive Date: 20181206
  Receipt Date: 20181206
  Transmission Date: 20190205
  Serious: Yes (Other)
  Sender: FDA-Public Use
  Company Number: CA-GLAXOSMITHKLINE-CA2018GSK211398

PATIENT
  Age: 57 Year
  Sex: Female

DRUGS (2)
  1. SALBUTAMOL SULPHATE [Suspect]
     Active Substance: ALBUTEROL SULFATE
     Indication: PRODUCT USED FOR UNKNOWN INDICATION
     Dosage: 100 ?G, PRN
     Route: 055
     Dates: start: 1978
  2. SYMBICORT [Suspect]
     Active Substance: BUDESONIDE\FORMOTEROL FUMARATE DIHYDRATE
     Indication: PRODUCT USED FOR UNKNOWN INDICATION
     Dosage: UNK
     Route: 055
     Dates: start: 2008

REACTIONS (3)
  - Drug effect incomplete [Unknown]
  - Asthma [Recovered/Resolved]
  - Obstructive airways disorder [Unknown]

NARRATIVE: CASE EVENT DATE: 20170615
